FAERS Safety Report 14940656 (Version 2)
Quarter: 2018Q2

REPORT INFORMATION
  Report Type: Spontaneous
  Country: US (occurrence: US)
  Receive Date: 20180525
  Receipt Date: 20180621
  Transmission Date: 20180711
  Serious: Yes (Other)
  Sender: FDA-Public Use
  Company Number: US-ASTRAZENECA-2018SE66798

PATIENT
  Sex: Female

DRUGS (3)
  1. TRICOR [Suspect]
     Active Substance: FENOFIBRATE
     Route: 048
  2. NEXIUM [Suspect]
     Active Substance: ESOMEPRAZOLE MAGNESIUM
     Indication: DYSPEPSIA
     Dosage: DOSE UNKNOWN, AS REQUIRED
     Route: 048
  3. CRESTOR [Suspect]
     Active Substance: ROSUVASTATIN CALCIUM
     Route: 048

REACTIONS (9)
  - Memory impairment [Unknown]
  - Muscular weakness [Unknown]
  - Cataract [Unknown]
  - Blood glucose increased [Unknown]
  - Visual impairment [Unknown]
  - Vision blurred [Unknown]
  - Hot flush [Unknown]
  - Blindness unilateral [Not Recovered/Not Resolved]
  - Weight increased [Unknown]
